FAERS Safety Report 16276856 (Version 3)
Quarter: 2019Q2

REPORT INFORMATION
  Report Type: Report from Study
  Country: DE (occurrence: DE)
  Receive Date: 20190506
  Receipt Date: 20190513
  Transmission Date: 20190711
  Serious: Yes (Other)
  Sender: FDA-Public Use
  Company Number: DE-PFIZER INC-2019188827

PATIENT
  Sex: Female
  Weight: 130 kg

DRUGS (8)
  1. PANTOPRAZOLE [Suspect]
     Active Substance: PANTOPRAZOLE
     Dosage: UNK
     Route: 065
  2. SEROQUEL [Concomitant]
     Active Substance: QUETIAPINE FUMARATE
     Dosage: UNK
  3. METFORMIN [Concomitant]
     Active Substance: METFORMIN HYDROCHLORIDE
     Dosage: UNK
  4. NEUROCIL [LEVOMEPROMAZINE HYDROCHLORIDE] [Concomitant]
     Dosage: UNK
  5. DOXEPIN [Concomitant]
     Active Substance: DOXEPIN
     Dosage: UNK
  6. DOXAZOSIN [Concomitant]
     Active Substance: DOXAZOSIN\DOXAZOSIN MESYLATE
     Dosage: UNK
  7. DEPO-CLINOVIR [Suspect]
     Active Substance: MEDROXYPROGESTERONE ACETATE
     Indication: HORMONAL CONTRACEPTION
     Dosage: UNK
     Dates: start: 20161016, end: 20181003
  8. SODIUM VALPROATE [Concomitant]
     Active Substance: VALPROATE SODIUM
     Dosage: UNK

REACTIONS (2)
  - Deep vein thrombosis [Unknown]
  - Pulmonary embolism [Unknown]

NARRATIVE: CASE EVENT DATE: 20181118
